FAERS Safety Report 6355711-8 (Version None)
Quarter: 2009Q3

REPORT INFORMATION
  Report Type: 
  Country: None (occurrence: None)
  Receive Date: 20090910
  Receipt Date: 20090903
  Transmission Date: 20100115
  Serious: Yes (Death)
  Sender: FDA-Public Use
  Company Number: 2009JP002473

PATIENT
  Age: 83 Year
  Sex: Male
  Weight: 64 kg

DRUGS (6)
  1. PROGRAF [Suspect]
     Indication: INTERSTITIAL LUNG DISEASE
     Dosage: 1 MG, UID/QD,; 2 MG, UID/QD,
     Dates: start: 20060830, end: 20061121
  2. PROGRAF [Suspect]
     Indication: INTERSTITIAL LUNG DISEASE
     Dosage: 1 MG, UID/QD,; 2 MG, UID/QD,
     Dates: start: 20061122, end: 20080212
  3. PREDNISOLONE [Concomitant]
  4. ONEALFA (ALFACALCIDOL) TABLET [Concomitant]
  5. LOXONIN (LOXOPROFEN) TABLET [Concomitant]
  6. SALAZOPYRIN FORMULATION UNKNOWN [Concomitant]

REACTIONS (2)
  - IMMUNOSUPPRESSION [None]
  - LUNG NEOPLASM MALIGNANT [None]
